FAERS Safety Report 9731925 (Version 4)
Quarter: 2014Q1

REPORT INFORMATION
  Report Type: Report from Study
  Country: NL (occurrence: NL)
  Receive Date: 20131205
  Receipt Date: 20140120
  Transmission Date: 20141002
  Serious: Yes (Hospitalization, Disabling)
  Sender: FDA-Public Use
  Company Number: PHHO2012NL005245

PATIENT
  Sex: 0

DRUGS (11)
  1. PROGRAF [Suspect]
     Indication: RENAL TRANSPLANT
     Dosage: 7 MG, BID (IN THE MORNING AND EVENING)
     Route: 048
     Dates: start: 20110813, end: 20120213
  2. MYFORTIC [Suspect]
     Indication: RENAL TRANSPLANT
     Dosage: 360 MG, BID
     Route: 048
     Dates: start: 20110813, end: 20120213
  3. PREDNISOLON [Suspect]
     Indication: RENAL TRANSPLANT
     Dosage: 5 MG, BID
     Route: 048
     Dates: start: 20110813, end: 20120213
  4. CINACALCET [Concomitant]
     Dosage: 30 MG, QD
     Dates: start: 20120112, end: 20120213
  5. THYRAX [Concomitant]
     Indication: HYPOTHYROIDISM
     Dosage: 0.1 MG, QD
     Dates: start: 20110824, end: 20120213
  6. NIFEDIPINE - SLOW RELEASE [Concomitant]
     Indication: HYPERTENSION
     Dosage: 30 MG, BID
     Dates: start: 20110824, end: 20120213
  7. PANTOZOL [Concomitant]
     Indication: PROPHYLAXIS
     Dosage: 40 MG, QD
     Dates: start: 20110812, end: 20120213
  8. SIMVASTATIN [Concomitant]
     Dosage: 20 MG, QD
     Dates: start: 20110926, end: 20120213
  9. METFORMIN [Concomitant]
     Indication: DIABETES MELLITUS
     Dosage: 500 MG, TID
     Dates: start: 20111031, end: 20120213
  10. STEROID [Concomitant]
     Indication: RENAL TRANSPLANT
     Dosage: 760 MG, BID
     Dates: start: 20110813
  11. METOPROLOL [Concomitant]
     Indication: HYPERTENSION
     Dosage: 50 MG, BID
     Dates: start: 20110812, end: 20120213

REACTIONS (4)
  - Impaired healing [Recovered/Resolved]
  - Angiopathy [Recovered/Resolved]
  - Peripheral vascular disorder [Recovered/Resolved with Sequelae]
  - Tendonitis [Recovered/Resolved]
